FAERS Safety Report 19086944 (Version 1)
Quarter: 2021Q2

REPORT INFORMATION
  Report Type: Spontaneous
  Country: IN (occurrence: IN)
  Receive Date: 20210402
  Receipt Date: 20210402
  Transmission Date: 20210717
  Serious: Yes (Hospitalization, Other)
  Sender: FDA-Public Use
  Company Number: IN-PURACAP-IN-2021EPCLIT00348

PATIENT
  Age: 47 Year
  Sex: Male

DRUGS (8)
  1. IBUPROFEN. [Suspect]
     Active Substance: IBUPROFEN
     Indication: POLYARTHRITIS
     Route: 065
  2. PREDNISOLONE. [Suspect]
     Active Substance: PREDNISOLONE
     Indication: POLYARTHRITIS
     Route: 065
  3. PANTOPRAZOLE [Interacting]
     Active Substance: PANTOPRAZOLE
     Route: 065
     Dates: start: 2019
  4. ONDANSETRON [Interacting]
     Active Substance: ONDANSETRON
     Route: 065
     Dates: start: 2019
  5. CEFTRIAXONE. [Interacting]
     Active Substance: CEFTRIAXONE
     Route: 065
     Dates: start: 2019
  6. FEBUXOSTAT. [Interacting]
     Active Substance: FEBUXOSTAT
     Route: 065
     Dates: start: 2019
  7. PARACETAMOL [Interacting]
     Active Substance: ACETAMINOPHEN
     Route: 065
     Dates: start: 2019
  8. METOCLOPRAMIDE. [Interacting]
     Active Substance: METOCLOPRAMIDE
     Route: 065
     Dates: start: 2019

REACTIONS (5)
  - Haematemesis [Unknown]
  - Melaena [Unknown]
  - Haematuria [Unknown]
  - Mast cell activation syndrome [Unknown]
  - Nephropathy [Recovering/Resolving]

NARRATIVE: CASE EVENT DATE: 2019
